FAERS Safety Report 23885612 (Version 1)
Quarter: 2024Q2

REPORT INFORMATION
  Report Type: Spontaneous
  Country: DE (occurrence: DE)
  Receive Date: 20240522
  Receipt Date: 20240522
  Transmission Date: 20240715
  Serious: Yes (Hospitalization, Other)
  Sender: FDA-Public Use
  Company Number: DE-TEVA-VS-3156016

PATIENT
  Age: 31 Year
  Sex: Male

DRUGS (18)
  1. CIPROFLOXACIN [Suspect]
     Active Substance: CIPROFLOXACIN
     Indication: Diverticulitis
     Dosage: CIPROFLOXACIN-RATIOPHARM 500 MG FILMTABLETTEN
     Route: 065
     Dates: start: 20090921
  2. CIPROFLOXACIN [Suspect]
     Active Substance: CIPROFLOXACIN
     Indication: Diverticulitis
     Dosage: 1-0-1
     Route: 048
     Dates: start: 201604
  3. CIPROFLOXACIN [Suspect]
     Active Substance: CIPROFLOXACIN
     Indication: Diverticulitis
     Dosage: 1-0-1
     Route: 048
     Dates: start: 201403
  4. CIPROFLOXACIN [Suspect]
     Active Substance: CIPROFLOXACIN
     Indication: Diverticulitis
     Dosage: 1-0-1, RATIOPHARM
     Route: 048
     Dates: start: 20200311
  5. CIPROFLOXACIN [Suspect]
     Active Substance: CIPROFLOXACIN
     Indication: Product used for unknown indication
     Dosage: AL
     Route: 065
     Dates: start: 2017
  6. CIPROFLOXACIN [Suspect]
     Active Substance: CIPROFLOXACIN
     Indication: Product used for unknown indication
     Dosage: AL
     Route: 065
     Dates: start: 2018
  7. CIPROFLOXACIN [Suspect]
     Active Substance: CIPROFLOXACIN
     Indication: Product used for unknown indication
     Dosage: AL, 1-0-1
     Route: 065
     Dates: start: 202003
  8. CIPROFLOXACIN [Suspect]
     Active Substance: CIPROFLOXACIN
     Indication: Product used for unknown indication
     Dosage: 200MG/100ML
     Route: 065
  9. METAMIZOL [Concomitant]
     Active Substance: METAMIZOLE SODIUM
     Indication: Product used for unknown indication
     Dosage: TIME INTERVAL: AS NECESSARY
     Route: 065
     Dates: start: 2009
  10. RAMIPRIL [Concomitant]
     Active Substance: RAMIPRIL
     Indication: Product used for unknown indication
     Dosage: 0-0-1
     Route: 065
  11. CIPRO [Suspect]
     Active Substance: CIPROFLOXACIN\CIPROFLOXACIN HYDROCHLORIDE
     Indication: Product used for unknown indication
     Dosage: 500MG FILMTAB FTA
     Route: 065
     Dates: start: 2014
  12. CIPROFLOXACIN [Suspect]
     Active Substance: CIPROFLOXACIN
     Indication: Product used for unknown indication
     Dosage: ARISTO
     Route: 065
  13. CIPROFLOXACIN [Suspect]
     Active Substance: CIPROFLOXACIN
     Indication: Product used for unknown indication
     Dosage: ARISTO
     Route: 065
     Dates: start: 201604
  14. CIPROFLOXACIN [Suspect]
     Active Substance: CIPROFLOXACIN
     Indication: Product used for unknown indication
     Dosage: ARISTO
     Route: 065
     Dates: start: 201607
  15. PERENTEROL [Concomitant]
     Active Substance: SACCHAROMYCES CEREVISIAE
     Indication: Product used for unknown indication
     Dosage: TIME INTERVAL: 0.33333333 DAYS: 2-2-2
     Route: 065
     Dates: start: 2010
  16. ALPRAZOLAM [Concomitant]
     Active Substance: ALPRAZOLAM
     Indication: Product used for unknown indication
     Dosage: TIME INTERVAL: 0.33333333 DAYS: 1-1-1, 1A PHARMA
     Route: 065
  17. CITALOPRAM [Concomitant]
     Active Substance: CITALOPRAM\CITALOPRAM HYDROBROMIDE
     Indication: Product used for unknown indication
     Dosage: 1A PHARMA, 0.5,0,0 FOR 4 DAYS, THEN 1,0,0 FOR 1 WEEK, THEN 2,0,0
     Route: 065
  18. HYGROTON [Concomitant]
     Active Substance: CHLORTHALIDONE
     Indication: Product used for unknown indication
     Dosage: 0-0-1
     Route: 065

REACTIONS (70)
  - Lumbar spinal stenosis [Recovering/Resolving]
  - Poisoning [Unknown]
  - Hypoaesthesia [Unknown]
  - Arthralgia [Unknown]
  - Asthenia [Unknown]
  - Myalgia [Unknown]
  - Muscle spasms [Unknown]
  - Muscle twitching [Unknown]
  - Neuralgia [Unknown]
  - Skin burning sensation [Unknown]
  - Neuropathy peripheral [Unknown]
  - Visual impairment [Unknown]
  - Depression [Unknown]
  - Fatigue [Unknown]
  - Hypertension [Unknown]
  - Vertigo [Unknown]
  - Loss of libido [Unknown]
  - Phantom limb syndrome [Unknown]
  - Mental disorder [Unknown]
  - Liver function test abnormal [Unknown]
  - Pain [Unknown]
  - Colitis [Unknown]
  - Hepatic enzyme increased [Unknown]
  - Abdominal pain lower [Recovering/Resolving]
  - Diverticulum intestinal [Recovering/Resolving]
  - Inflammatory marker increased [Recovering/Resolving]
  - Calculus urethral [Recovering/Resolving]
  - Urinary tract infection [Recovering/Resolving]
  - Faeces hard [Recovering/Resolving]
  - Pyrexia [Recovering/Resolving]
  - General physical health deterioration [Recovering/Resolving]
  - Diverticulitis [Recovering/Resolving]
  - Gastrointestinal wall thickening [Unknown]
  - Leukocytosis [Unknown]
  - Abscess [Recovering/Resolving]
  - Obesity [Recovering/Resolving]
  - Pyrexia [Recovering/Resolving]
  - Pelvic pain [Unknown]
  - Adjustment disorder with mixed disturbance of emotion and conduct [Unknown]
  - Gastrointestinal viral infection [Unknown]
  - Hepatitis viral [Unknown]
  - Atopy [Unknown]
  - Bronchitis [Unknown]
  - Gait disturbance [Unknown]
  - Impaired work ability [Unknown]
  - Renal colic [Unknown]
  - Diverticulitis [Unknown]
  - Campylobacter infection [Unknown]
  - Panic disorder [Unknown]
  - Tonsillitis [Unknown]
  - Somatic symptom disorder [Unknown]
  - Diarrhoea [Unknown]
  - Sinusitis [Unknown]
  - Hyperhidrosis [Unknown]
  - Sensory disturbance [Unknown]
  - C-reactive protein increased [Unknown]
  - Cholelithiasis [Unknown]
  - Otitis media [Unknown]
  - Nephrolithiasis [Unknown]
  - Sciatica [Unknown]
  - Influenza [Unknown]
  - Seasonal allergy [Unknown]
  - Chest pain [Unknown]
  - Paraesthesia [Unknown]
  - Gastroenteritis [Unknown]
  - Intervertebral disc protrusion [Unknown]
  - Dysplastic naevus [Unknown]
  - Upper respiratory fungal infection [Unknown]
  - Spinal osteoarthritis [Unknown]
  - Enteritis [Unknown]

NARRATIVE: CASE EVENT DATE: 20090901
